FAERS Safety Report 9699614 (Version 1)
Quarter: 2013Q4

REPORT INFORMATION
  Report Type: Spontaneous
  Country: US (occurrence: US)
  Receive Date: 20131120
  Receipt Date: 20131120
  Transmission Date: 20140711
  Serious: No
  Sender: FDA-Public Use
  Company Number: US-TEVA-372816USA

PATIENT
  Sex: Female

DRUGS (2)
  1. PARAGARD 380A [Suspect]
     Indication: CONTRACEPTION
     Route: 015
     Dates: start: 2008, end: 201207
  2. PARAGARD 380A [Suspect]
     Dates: start: 2012

REACTIONS (2)
  - Device expulsion [Unknown]
  - Premenstrual syndrome [Recovered/Resolved]
